FAERS Safety Report 5257774-X (Version None)
Quarter: 2007Q1

REPORT INFORMATION
  Report Type: 
  Country: None (occurrence: None)
  Receive Date: 20070307
  Receipt Date: 20070112
  Transmission Date: 20070707
  Serious: Yes (Hospitalization)
  Sender: FDA-Public Use
  Company Number: US-JNJFOC-20070104725

PATIENT
  Age: 31 Year
  Sex: Male

DRUGS (3)
  1. TRAMADOL HYDROCHLORIDE AND ACETAMINOPHEN [Suspect]
     Indication: SUICIDE ATTEMPT
     Route: 048
  2. BACLOFEN [Suspect]
     Indication: SUICIDE ATTEMPT
     Route: 048
  3. TIZANIDINE HCL [Suspect]
     Indication: SUICIDE ATTEMPT
     Route: 048

REACTIONS (5)
  - BRADYCARDIA [None]
  - INTUBATION [None]
  - MULTIPLE DRUG OVERDOSE INTENTIONAL [None]
  - SEDATION [None]
  - SUICIDE ATTEMPT [None]
